FAERS Safety Report 6315625-6 (Version None)
Quarter: 2009Q3

REPORT INFORMATION
  Report Type: 
  Country: None (occurrence: None)
  Receive Date: 20090818
  Receipt Date: 20090812
  Transmission Date: 20100115
  Serious: Yes (Hospitalization)
  Sender: FDA-Public Use
  Company Number: FABR-1000896

PATIENT
  Age: 58 Year
  Sex: Male
  Weight: 70 kg

DRUGS (8)
  1. FABRAZYME [Suspect]
     Indication: FABRY'S DISEASE
     Dosage: 1.07 MG/KG, Q2W, INTRAVENOUS
     Route: 042
     Dates: start: 20051001
  2. FABRAZYME [Suspect]
  3. METOPROLOL TARTRATE [Concomitant]
  4. LOSARTAN (LOSARTAN ) [Concomitant]
  5. HYDROCHLOROTHIAZIDE [Concomitant]
  6. LEVOTHYROXINE SODIUM [Concomitant]
  7. FUROSEMIDE [Concomitant]
  8. WARFARIN SODIUM [Concomitant]

REACTIONS (9)
  - ACUTE RESPIRATORY FAILURE [None]
  - DYSPNOEA [None]
  - HYPERSENSITIVITY [None]
  - HYPERTENSION [None]
  - PYREXIA [None]
  - STRIDOR [None]
  - TACHYCARDIA [None]
  - TACHYPNOEA [None]
  - VOMITING [None]
